FAERS Safety Report 20470801 (Version 1)
Quarter: 2022Q1

REPORT INFORMATION
  Report Type: Spontaneous
  Country: US (occurrence: US)
  Receive Date: 20220214
  Receipt Date: 20220214
  Transmission Date: 20220423
  Serious: No
  Sender: FDA-Public Use
  Company Number: US-KALA PHARAMACEUTICALS-2022KLA00001

PATIENT
  Age: 51 Year
  Sex: Female
  Weight: 61.224 kg

DRUGS (4)
  1. EYSUVIS [Suspect]
     Active Substance: LOTEPREDNOL ETABONATE
     Indication: Dry eye
     Dosage: 1-2 DROPS, 2X/DAY IN BOTH EYES
     Route: 047
  2. EYSUVIS [Suspect]
     Active Substance: LOTEPREDNOL ETABONATE
     Dosage: 1-2 DROPS, 2X/DAY IN BOTH EYES
     Route: 047
  3. EYSUVIS [Suspect]
     Active Substance: LOTEPREDNOL ETABONATE
     Dosage: 1-2 DROPS, 2X/DAY IN BOTH EYES
     Route: 047
     Dates: start: 20211213
  4. EYSUVIS [Suspect]
     Active Substance: LOTEPREDNOL ETABONATE
     Dosage: 1-2 DROPS, 2X/DAY IN BOTH EYES
     Route: 047
     Dates: start: 20211213

REACTIONS (3)
  - Madarosis [Not Recovered/Not Resolved]
  - Incorrect product administration duration [Not Recovered/Not Resolved]
  - Instillation site pain [Not Recovered/Not Resolved]

NARRATIVE: CASE EVENT DATE: 20211201
